FAERS Safety Report 6087109-4 (Version None)
Quarter: 2009Q1

REPORT INFORMATION
  Report Type: 
  Country: None (occurrence: None)
  Receive Date: 20090223
  Receipt Date: 20090216
  Transmission Date: 20090719
  Serious: Yes (Other)
  Sender: FDA-Public Use
  Company Number: US-ELI_LILLY_AND_COMPANY-US200807005558

PATIENT
  Sex: Female
  Weight: 67.12 kg

DRUGS (10)
  1. BYETTA [Suspect]
     Indication: DIABETES MELLITUS
     Dosage: 5 UG, 2/D
     Route: 058
     Dates: start: 20050101
  2. DIOVAN [Concomitant]
     Indication: HYPERTENSION
     Dosage: UNK, 2/D
     Route: 048
  3. LOTREL [Concomitant]
     Indication: HYPERTENSION
     Dosage: UNK, UNKNOWN
  4. CATAPRES /UNK/ [Concomitant]
     Indication: HYPERTENSION
     Dosage: UNK, UNKNOWN
  5. OXYCONTIN [Concomitant]
     Indication: PAIN
     Dosage: UNK, AS NEEDED
  6. PERCOCET [Concomitant]
     Indication: PAIN
     Dosage: UNK, AS NEEDED
  7. ASPIRIN [Concomitant]
     Dosage: UNK, UNKNOWN
  8. LEXAPRO [Concomitant]
     Dosage: UNK, UNKNOWN
  9. KLONOPIN [Concomitant]
     Dosage: UNK, UNKNOWN
  10. INSULIN [Concomitant]
     Dosage: UNK, UNKNOWN

REACTIONS (12)
  - ABDOMINAL DISCOMFORT [None]
  - ANOREXIA [None]
  - BLOOD GLUCOSE INCREASED [None]
  - CHILLS [None]
  - FALL [None]
  - FEELING COLD [None]
  - HYPERTHYROIDISM [None]
  - HYPOKALAEMIA [None]
  - JOINT HYPEREXTENSION [None]
  - NEPHROGENIC ANAEMIA [None]
  - RENAL FAILURE CHRONIC [None]
  - WEIGHT DECREASED [None]
